FAERS Safety Report 12678012 (Version 2)
Quarter: 2016Q3

REPORT INFORMATION
  Report Type: Spontaneous
  Country: FR (occurrence: FR)
  Receive Date: 20160823
  Receipt Date: 20160831
  Transmission Date: 20161109
  Serious: Yes (Death, Hospitalization)
  Sender: FDA-Public Use
  Company Number: FR-PFIZER INC-2016389872

PATIENT
  Age: 63 Year
  Sex: Male
  Weight: 76 kg

DRUGS (13)
  1. ENDOXAN /00021101/ [Suspect]
     Active Substance: CYCLOPHOSPHAMIDE
     Dosage: 1450 MG, DAILY (CYCLIC)
     Route: 041
     Dates: start: 20160106, end: 20160106
  2. DOXORUBICIN TEVA [Suspect]
     Active Substance: DOXORUBICIN
     Dosage: 97 MG, DAILY (CYCLIC)
     Route: 041
     Dates: start: 20160106, end: 20160106
  3. CORTANCYL [Suspect]
     Active Substance: PREDNISONE
     Dosage: 115 MG, DAILY
     Route: 048
     Dates: start: 20160109, end: 20160110
  4. ZELITREX [Concomitant]
     Active Substance: VALACYCLOVIR HYDROCHLORIDE
     Indication: PROPHYLAXIS
     Dosage: 500 MG, 2X/DAY
     Route: 048
  5. LEDERFOLINE [Concomitant]
     Active Substance: LEUCOVORIN CALCIUM
     Indication: PROPHYLAXIS
     Dosage: 25 MG, WEEKLY
     Route: 048
  6. ZYLORIC [Concomitant]
     Active Substance: ALLOPURINOL
     Indication: HYPERURICAEMIA
     Dosage: 100 MG, 2X/DAY
     Route: 048
  7. METHYLPREDNISOLONE MYLAN /00049602/ [Suspect]
     Active Substance: METHYLPREDNISOLONE SODIUM SUCCINATE
     Dosage: 100 MG, DAILY (CYCLIC)
     Route: 041
     Dates: start: 20160106, end: 20160108
  8. METHOTREXATE SODIUM. [Suspect]
     Active Substance: METHOTREXATE SODIUM
     Dosage: UNK
     Route: 037
     Dates: start: 20160106, end: 20160106
  9. VINCRISTINE SULFATE. [Suspect]
     Active Substance: VINCRISTINE SULFATE
     Dosage: 2 MG, DAILY (CYCLIC)
     Route: 041
     Dates: start: 20160106, end: 20160106
  10. ETOPOSIDE TEVA [Suspect]
     Active Substance: ETOPOSIDE
     Dosage: 190 MG, DAILY (CYCLIC)
     Route: 042
     Dates: start: 20160107, end: 20160108
  11. ONDANSETRON ACCORD [Concomitant]
     Active Substance: ONDANSETRON
     Dosage: 8 MG, DAILY
     Route: 041
     Dates: start: 20160106, end: 20160108
  12. GRANOCYTE [Concomitant]
     Active Substance: LENOGRASTIM
     Dosage: UNK
     Dates: start: 20160111, end: 20160117
  13. BACTRIM [Concomitant]
     Active Substance: SULFAMETHOXAZOLE\TRIMETHOPRIM
     Indication: PROPHYLAXIS
     Route: 048

REACTIONS (3)
  - Septic shock [Fatal]
  - Febrile bone marrow aplasia [Fatal]
  - Acute prerenal failure [Fatal]

NARRATIVE: CASE EVENT DATE: 20160116
